FAERS Safety Report 4531593-1 (Version None)
Quarter: 2004Q4

REPORT INFORMATION
  Report Type: 
  Country: None (occurrence: None)
  Receive Date: 20041216
  Receipt Date: 20041201
  Transmission Date: 20050328
  Serious: Yes (Disabling)
  Sender: FDA-Public Use
  Company Number: 2004-05075

PATIENT
  Age: 73 Year
  Sex: Female
  Weight: 73.5 kg

DRUGS (5)
  1. OXYTROL [Suspect]
     Dosage: 1 PATCH, 2/WEEK, TRANSDERMAL
     Route: 062
     Dates: start: 20041022, end: 20041118
  2. PROTONIX [Concomitant]
  3. LEVOXYL [Concomitant]
  4. ZOCOR [Concomitant]
  5. ASPIRIN [Concomitant]

REACTIONS (1)
  - PANIC ATTACK [None]
